FAERS Safety Report 6086048-2 (Version None)
Quarter: 2009Q1

REPORT INFORMATION
  Report Type: 
  Country: None (occurrence: None)
  Receive Date: 20090217
  Receipt Date: 20081201
  Transmission Date: 20090719
  Serious: Yes (Death, Other)
  Sender: FDA-Public Use
  Company Number: MC200800517

PATIENT
  Age: 45 Year
  Sex: Male

DRUGS (4)
  1. ANGIOMAX [Suspect]
     Indication: PERCUTANEOUS CORONARY INTERVENTION
     Dosage: 18.6 ML, BOLUS, INTRAVENOUS, 4.2 ML, HR, INTRAVENOUS
     Route: 040
     Dates: start: 20081102, end: 20081102
  2. ANGIOMAX [Suspect]
     Indication: PERCUTANEOUS CORONARY INTERVENTION
     Dosage: 18.6 ML, BOLUS, INTRAVENOUS, 4.2 ML, HR, INTRAVENOUS
     Route: 040
     Dates: start: 20081102, end: 20081103
  3. PLAVIX [Concomitant]
  4. ASPIRIN [Concomitant]

REACTIONS (4)
  - ACTIVATED PARTIAL THROMBOPLASTIN TIME PROLONGED [None]
  - CEREBRAL HAEMORRHAGE [None]
  - INTERNATIONAL NORMALISED RATIO ABNORMAL [None]
  - PROTHROMBIN TIME PROLONGED [None]
